FAERS Safety Report 11466697 (Version 1)
Quarter: 2015Q3

REPORT INFORMATION
  Report Type: Spontaneous
  Country: US (occurrence: US)
  Receive Date: 20150907
  Receipt Date: 20150907
  Transmission Date: 20151125
  Serious: Yes (Other)
  Sender: FDA-Public Use
  Company Number: US-TAKEDA-2014TUS014849

PATIENT

DRUGS (61)
  1. ACTOS [Suspect]
     Active Substance: PIOGLITAZONE HYDROCHLORIDE
     Indication: TYPE 2 DIABETES MELLITUS
     Dosage: 15 MG, UNK
     Route: 048
     Dates: start: 20060919, end: 20061221
  2. METFORMIN [Concomitant]
     Active Substance: METFORMIN HYDROCHLORIDE
     Dosage: 500 MG, X1 AM X2 PM
     Dates: start: 20050718, end: 20060512
  3. AVANDIA [Concomitant]
     Active Substance: ROSIGLITAZONE MALEATE
     Dosage: 8 MG, QD
     Dates: start: 20070517, end: 20070831
  4. GLUCOPHAGE [Concomitant]
     Active Substance: METFORMIN HYDROCHLORIDE
     Dosage: 500 MG, BID
     Dates: start: 20010320, end: 20010825
  5. GLUCOPHAGE [Concomitant]
     Active Substance: METFORMIN HYDROCHLORIDE
     Dosage: 1000 MG AM AND 500 MG PM
     Dates: start: 20060117
  6. DIABETA                            /00145301/ [Concomitant]
     Dosage: 5 MG, QD
     Dates: start: 20011201, end: 20020404
  7. DIABETA                            /00145301/ [Concomitant]
     Dosage: 5 MG, HALF TABLET, QD
     Dates: start: 20020404, end: 20041008
  8. DIABETA                            /00145301/ [Concomitant]
     Dosage: 5 MG HALF, QD
     Dates: start: 20070926, end: 20080102
  9. DIABETA                            /00145301/ [Concomitant]
     Dosage: 2.5 MG, BID
     Dates: start: 20080102, end: 20080509
  10. AMARYL [Concomitant]
     Active Substance: GLIMEPIRIDE
     Dosage: 1 MG, UNK
     Dates: start: 20120323
  11. AVANDIA [Concomitant]
     Active Substance: ROSIGLITAZONE MALEATE
     Dosage: 8 MG, HALF TABLET, QD
     Dates: start: 20061221
  12. GLUCOTROL [Concomitant]
     Active Substance: GLIPIZIDE
     Dosage: UNK
  13. AMARYL [Concomitant]
     Active Substance: GLIMEPIRIDE
     Dosage: 1 MG, 2 TABLETS
     Dates: start: 20130110
  14. GLUCOPHAGE [Concomitant]
     Active Substance: METFORMIN HYDROCHLORIDE
     Dosage: 1000 MG, BID
     Dates: start: 20011026, end: 20020904
  15. DIABETA                            /00145301/ [Concomitant]
     Dosage: 2.5 MG, QD
     Dates: start: 20051129
  16. DIABETA                            /00145301/ [Concomitant]
     Dosage: 2.5 MG, QD
     Dates: start: 20051205, end: 20051220
  17. DIABETA                            /00145301/ [Concomitant]
     Dosage: 5 MG, HALF TABLET, BID
     Dates: start: 20070517
  18. AMARYL [Concomitant]
     Active Substance: GLIMEPIRIDE
     Dosage: RAISE FROM 2 QAM TO 3 MG QAM IF SUGARS RISE GREATER THAN 20
     Dates: start: 20130816
  19. AMARYL [Concomitant]
     Active Substance: GLIMEPIRIDE
     Dosage: 1 MG, 3 TABLETS, QD
     Dates: start: 20131010
  20. EMPIRIN COMPOUND [Concomitant]
     Dosage: 500 MG, QD
     Dates: start: 20051129
  21. METFORMIN [Concomitant]
     Active Substance: METFORMIN HYDROCHLORIDE
     Dosage: 1000 MG, HALF TABLET, BID
     Dates: start: 20060117
  22. DIABETA                            /00145301/ [Concomitant]
     Dosage: 5 MG, QD
     Dates: start: 20070531
  23. DIABETA                            /00145301/ [Concomitant]
     Dosage: 2.5 MG, QD
     Dates: start: 20100402, end: 20120309
  24. AMARYL [Concomitant]
     Active Substance: GLIMEPIRIDE
     Dosage: 1 MG, 1.5 TABLET, QD
     Dates: start: 20111216
  25. AMARYL [Concomitant]
     Active Substance: GLIMEPIRIDE
     Dosage: 1 MG, 2 TABLETS
     Dates: start: 20111220
  26. METFORMIN [Concomitant]
     Active Substance: METFORMIN HYDROCHLORIDE
     Dosage: 1000 MG, HALF TABLET, BID
     Dates: start: 20040908, end: 20050207
  27. METFORMIN [Concomitant]
     Active Substance: METFORMIN HYDROCHLORIDE
     Dosage: 1000 MG, HALF TABLET, BID
     Dates: start: 20050207
  28. METFORMIN [Concomitant]
     Active Substance: METFORMIN HYDROCHLORIDE
     Dosage: 1 GR QAM AND 500 MG QM
     Dates: start: 20051129
  29. GLUCOPHAGE [Concomitant]
     Active Substance: METFORMIN HYDROCHLORIDE
     Dosage: 1000 MG, UNK
     Dates: start: 20010825
  30. DIABETA                            /00145301/ [Concomitant]
     Dosage: 5 MG, IN AM
     Dates: start: 20060803
  31. DIABETA                            /00145301/ [Concomitant]
     Dosage: 5 MG, QD
     Dates: start: 20061221
  32. DIABETA                            /00145301/ [Concomitant]
     Dosage: 5 MG, HALF TABLET, QD
     Dates: start: 20080530, end: 20080620
  33. DIABETA                            /00145301/ [Concomitant]
     Dosage: 1 MG, UNK
     Dates: start: 20120323
  34. AMARYL [Concomitant]
     Active Substance: GLIMEPIRIDE
     Dosage: 1 MG, 2 BID
     Dates: start: 20140214
  35. ACTOS [Suspect]
     Active Substance: PIOGLITAZONE HYDROCHLORIDE
     Dosage: 30 MG, UNK
     Route: 048
     Dates: start: 20061221, end: 20070109
  36. ACTOS [Suspect]
     Active Substance: PIOGLITAZONE HYDROCHLORIDE
     Dosage: 45 MG, HALF TABLET, QD
     Route: 048
     Dates: start: 20080214, end: 20130601
  37. GLUCOPHAGE [Concomitant]
     Active Substance: METFORMIN HYDROCHLORIDE
     Dosage: 1000 MG Q AM AND 500 MG Q PM
     Dates: start: 20051211
  38. GLUCOPHAGE [Concomitant]
     Active Substance: METFORMIN HYDROCHLORIDE
     Dosage: 500 MG, TID
     Dates: start: 20051220
  39. DIABETA                            /00145301/ [Concomitant]
     Dosage: 5 MG, 1/4 TABLET, UNK
     Dates: start: 20040908
  40. DIABETA                            /00145301/ [Concomitant]
     Dosage: 5 MG, HALF TABLET, QD
     Dates: start: 20060712
  41. DIABETA                            /00145301/ [Concomitant]
     Dosage: 5 MG, HALF TABLET OR EVEN TOTALLY HOLD IF BLOOD SUGAR {100
     Dates: start: 20060919
  42. LANTUS [Concomitant]
     Active Substance: INSULIN GLARGINE
     Dosage: UNK
  43. AMARYL [Concomitant]
     Active Substance: GLIMEPIRIDE
     Dosage: 2 MG, QD
     Route: 048
     Dates: start: 20120524
  44. AMARYL [Concomitant]
     Active Substance: GLIMEPIRIDE
     Dosage: 2 MG, QD
     Dates: start: 20130515
  45. AMARYL [Concomitant]
     Active Substance: GLIMEPIRIDE
     Dosage: 2 MG, QD
     Route: 048
     Dates: start: 20131120, end: 20131213
  46. AMARYL [Concomitant]
     Active Substance: GLIMEPIRIDE
     Dosage: 1 MG AND 3 MG, QD
     Route: 048
     Dates: start: 20140616
  47. AVANDIA [Concomitant]
     Active Substance: ROSIGLITAZONE MALEATE
     Dosage: 4 MG, QD
     Dates: start: 20070207, end: 20070517
  48. AVANDIA [Concomitant]
     Active Substance: ROSIGLITAZONE MALEATE
     Dosage: 8 MG, HALF TABLET, QD
     Dates: start: 20070831, end: 20080214
  49. GLUCOPHAGE [Concomitant]
     Active Substance: METFORMIN HYDROCHLORIDE
     Dosage: 1000 MG, UNK
     Dates: start: 20011026
  50. DIABETA                            /00145301/ [Concomitant]
     Dosage: 5 MG, 1/4 TABLET, UNK
     Dates: start: 20050207
  51. DIABETA                            /00145301/ [Concomitant]
     Dosage: 1 MG TABLET X2 OF X3/WEEK AND 1.5 X4-5/WEEK
     Dates: start: 20091001
  52. DIABETA                            /00145301/ [Concomitant]
     Dosage: 1 MG, #90 1 QD
     Dates: start: 20121217
  53. AMARYL [Concomitant]
     Active Substance: GLIMEPIRIDE
     Dosage: 1 MG, 3 TABS QAM
     Dates: start: 20131114
  54. AMARYL [Concomitant]
     Active Substance: GLIMEPIRIDE
     Dosage: 4 MG, TABLETS 1 BID AM AND PM
     Dates: start: 20140828
  55. EMPIRIN COMPOUND [Concomitant]
     Dosage: 325 MG, QD
     Dates: start: 20080509
  56. METFORMIN [Concomitant]
     Active Substance: METFORMIN HYDROCHLORIDE
     Dosage: 1000 MG, BID
     Dates: start: 20030512, end: 20040908
  57. GLUCOPHAGE [Concomitant]
     Active Substance: METFORMIN HYDROCHLORIDE
     Dosage: 500 MG AM AND X2 IN PM
     Dates: start: 20060127
  58. DIABETA                            /00145301/ [Concomitant]
     Dosage: 3.75 MG, QD
     Dates: start: 20090619, end: 20090817
  59. AMARYL [Concomitant]
     Active Substance: GLIMEPIRIDE
     Dosage: 1 MG TABLET 3 MG, QD
     Route: 048
     Dates: start: 20140521
  60. AMARYL [Concomitant]
     Active Substance: GLIMEPIRIDE
     Dosage: 4 MG, QD
     Dates: start: 20140627
  61. AMARYL [Concomitant]
     Active Substance: GLIMEPIRIDE
     Dosage: 1 MG TABLET, 3 MG, QD
     Dates: start: 20131213

REACTIONS (1)
  - Bladder cancer [Unknown]

NARRATIVE: CASE EVENT DATE: 20120110
